FAERS Safety Report 7447323-X (Version None)
Quarter: 2011Q2

REPORT INFORMATION
  Report Type: 
  Country: None (occurrence: None)
  Receive Date: 20110429
  Receipt Date: 20101230
  Transmission Date: 20111010
  Serious: No
  Sender: FDA-Public Use
  Company Number: US-ASTRAZENECA-2010SE61424

PATIENT
  Age: 74 Year
  Sex: Female

DRUGS (9)
  1. PREDNISOLONE [Concomitant]
  2. CYMBALTA [Concomitant]
  3. LOTENSIN [Concomitant]
  4. WELLBUTRIN [Concomitant]
  5. CARTIA CD [Concomitant]
  6. ABILIFY [Concomitant]
  7. XYZAL [Concomitant]
  8. NEXIUM [Suspect]
     Indication: GASTROOESOPHAGEAL REFLUX DISEASE
     Route: 048
     Dates: start: 20040101, end: 20101001
  9. LASIX [Concomitant]

REACTIONS (1)
  - TONGUE DISORDER [None]
